FAERS Safety Report 5198127-2 (Version None)
Quarter: 2007Q1

REPORT INFORMATION
  Report Type: 
  Country: None (occurrence: None)
  Receive Date: 20070104
  Receipt Date: 20061222
  Transmission Date: 20070707
  Serious: Yes (Disabling)
  Sender: FDA-Public Use
  Company Number: GB-ROCHE-469879

PATIENT
  Age: 39 Year
  Sex: Male

DRUGS (3)
  1. CYMEVENE [Suspect]
     Route: 041
     Dates: start: 20060801, end: 20060815
  2. SUSTANON [Concomitant]
     Route: 030
     Dates: start: 20010615
  3. AZATHIOPRINE [Concomitant]
     Route: 048
     Dates: start: 19940615, end: 20060801

REACTIONS (4)
  - BURNING SENSATION [None]
  - OEDEMA PERIPHERAL [None]
  - PAIN IN EXTREMITY [None]
  - PARAESTHESIA [None]
